FAERS Safety Report 4709689-0 (Version None)
Quarter: 2005Q2

REPORT INFORMATION
  Report Type: 
  Country: None (occurrence: None)
  Receive Date: 20050629
  Receipt Date: 20050506
  Transmission Date: 20051028
  Serious: No
  Sender: FDA-Public Use
  Company Number: 05P-163-0300008-00

PATIENT
  Age: 70 Year
  Sex: Female
  Weight: 69.4003 kg

DRUGS (7)
  1. HUMIRA [Suspect]
     Indication: RHEUMATOID ARTHRITIS
     Dosage: 40 MG, 1 IN 1 WK, SUCUTANEOUS
     Route: 058
     Dates: start: 20050301
  2. FOLIC ACID [Concomitant]
  3. ISOSORBIDE MONONITRATE [Concomitant]
  4. FUROSEMIDE [Concomitant]
  5. ERGOCALCIFEROL [Concomitant]
  6. ALPRAZOLAM [Concomitant]
  7. VICODIN [Concomitant]

REACTIONS (1)
  - PRURITUS GENERALISED [None]
